FAERS Safety Report 8543073-7 (Version None)
Quarter: 2012Q3

REPORT INFORMATION
  Report Type: 
  Country: None (occurrence: None)
  Receive Date: 20120716
  Receipt Date: 20120629
  Transmission Date: 20120928
  Serious: Yes (Hospitalization, Other)
  Sender: FDA-Public Use
  Company Number: 2012-001497

PATIENT
  Age: 59 Year
  Sex: Female
  Weight: 77.2 kg

DRUGS (41)
  1. NEXIUM [Concomitant]
  2. HYDROCORTISONE [Concomitant]
  3. FOLATE (FOLIC ACID) [Concomitant]
  4. FERROUS SULFATE TAB [Concomitant]
  5. IBUPROFEN [Concomitant]
  6. BEXTRA (PARECOXIB SODIUM) [Concomitant]
  7. ACTONEL [Suspect]
     Dosage: 150 MG ONCE MONTHLY
  8. VICTOZA [Concomitant]
  9. IMURAN [Concomitant]
  10. FLONASE [Concomitant]
  11. ACTONEL [Suspect]
     Indication: PROPHYLAXIS
     Dosage: 35 MG ONCE WEEKLY, ORAL
     Route: 048
     Dates: start: 20040624, end: 20060214
  12. ACTONEL [Suspect]
     Indication: OSTEOPENIA
     Dosage: 35 MG ONCE WEEKLY, ORAL
     Route: 048
     Dates: start: 20040624, end: 20060214
  13. GLUCOPHAGE [Concomitant]
  14. DEPEN [Concomitant]
  15. ALLEGRA [Concomitant]
  16. ZYRTEC DUO (CETIRIZINE HYDROCHLORIDE, PSEUDOEPHEDRINE HYDROCHLORIDE) [Concomitant]
  17. FOSAMAX [Suspect]
     Indication: OSTEOPENIA
     Dosage: 5 MG, QD, ORAL : 10 MG, QD, ORAL : 70 MG, 1/WEEK
     Route: 048
     Dates: end: 20001218
  18. FOSAMAX [Suspect]
     Indication: PROPHYLAXIS
     Dosage: 5 MG, QD, ORAL : 10 MG, QD, ORAL : 70 MG, 1/WEEK
     Route: 048
     Dates: end: 20001218
  19. FOSAMAX [Suspect]
     Indication: OSTEOPENIA
     Dosage: 5 MG, QD, ORAL : 10 MG, QD, ORAL : 70 MG, 1/WEEK
     Route: 048
     Dates: start: 20001218
  20. FOSAMAX [Suspect]
     Indication: PROPHYLAXIS
     Dosage: 5 MG, QD, ORAL : 10 MG, QD, ORAL : 70 MG, 1/WEEK
     Route: 048
     Dates: start: 20001218
  21. FOSAMAX [Suspect]
     Indication: OSTEOPENIA
     Dosage: 5 MG, QD, ORAL : 10 MG, QD, ORAL : 70 MG, 1/WEEK
     Route: 048
     Dates: start: 20010628, end: 20040322
  22. FOSAMAX [Suspect]
     Indication: PROPHYLAXIS
     Dosage: 5 MG, QD, ORAL : 10 MG, QD, ORAL : 70 MG, 1/WEEK
     Route: 048
     Dates: start: 20010628, end: 20040322
  23. ASPIRIN [Concomitant]
  24. ALDARA [Concomitant]
  25. BYETTA [Concomitant]
  26. ARTHROTEC [Concomitant]
  27. PAXIL [Concomitant]
  28. NASONEX AQUEOUS (MOMETASONE FUROATE) [Concomitant]
  29. CARDENE [Concomitant]
  30. DICLOFENAC SODIUM [Concomitant]
  31. KLOR-CON [Concomitant]
  32. RELAFEN [Concomitant]
  33. PREDNISONE [Concomitant]
  34. OMNARIS (CICLESONIDE) [Concomitant]
  35. BONIVA [Suspect]
     Indication: PROPHYLAXIS
     Dosage: 150 MG, 1/MONTH, ORAL
     Route: 048
     Dates: start: 20060605, end: 20080506
  36. BONIVA [Suspect]
     Indication: OSTEOPENIA
     Dosage: 150 MG, 1/MONTH, ORAL
     Route: 048
     Dates: start: 20060605, end: 20080506
  37. ALENDRONATE SODIUM [Suspect]
     Indication: PROPHYLAXIS
     Dosage: 70 MG, 1/WEEK
     Dates: start: 20100728, end: 20110428
  38. ALENDRONATE SODIUM [Suspect]
     Indication: OSTEOPENIA
     Dosage: 70 MG, 1/WEEK
     Dates: start: 20100728, end: 20110428
  39. VITAMIN D (COLECALCIFEROL) [Concomitant]
  40. DIFLUCAN [Concomitant]
  41. ARAVA [Concomitant]

REACTIONS (6)
  - ARTHRALGIA [None]
  - FRACTURE DELAYED UNION [None]
  - PATHOLOGICAL FRACTURE [None]
  - FALL [None]
  - FRACTURE DISPLACEMENT [None]
  - FEMUR FRACTURE [None]
